FAERS Safety Report 11126050 (Version 1)
Quarter: 2015Q2

REPORT INFORMATION
  Report Type: Spontaneous
  Country: CN (occurrence: CN)
  Receive Date: 20150520
  Receipt Date: 20150520
  Transmission Date: 20150821
  Serious: Yes (Hospitalization, Other)
  Sender: FDA-Public Use
  Company Number: CN-CIPLA LTD.-2015CN04051

PATIENT

DRUGS (1)
  1. LAMOTRIGINE. [Suspect]
     Active Substance: LAMOTRIGINE
     Indication: EPILEPSY
     Route: 048

REACTIONS (3)
  - Pneumothorax [Recovered/Resolved]
  - Stevens-Johnson syndrome [Recovered/Resolved]
  - Obliterative bronchiolitis [Recovered/Resolved]

NARRATIVE: CASE EVENT DATE: 201007
